FAERS Safety Report 5017941-7 (Version None)
Quarter: 2006Q2

REPORT INFORMATION
  Report Type: 
  Country: None (occurrence: None)
  Receive Date: 20060605
  Receipt Date: 20060531
  Transmission Date: 20061013
  Serious: Yes (Life-Threatening, Other)
  Sender: FDA-Public Use
  Company Number: BR-GLAXOSMITHKLINE-A0607789A

PATIENT
  Age: 18 Year
  Sex: Male

DRUGS (3)
  1. AMOXIL [Suspect]
     Indication: SUICIDE ATTEMPT
     Dosage: 6TAB SINGLE DOSE
     Route: 048
     Dates: start: 20060531, end: 20060531
  2. ASPIRIN [Suspect]
     Indication: SUICIDE ATTEMPT
     Route: 048
  3. CITALOPRAM HYDROBROMIDE [Suspect]
     Indication: SUICIDE ATTEMPT
     Route: 048

REACTIONS (4)
  - PSYCHOMOTOR HYPERACTIVITY [None]
  - SUICIDE ATTEMPT [None]
  - TACHYCARDIA [None]
  - TREMOR [None]
